FAERS Safety Report 15011467 (Version 1)
Quarter: 2018Q2

REPORT INFORMATION
  Report Type: Spontaneous
  Country: MX (occurrence: MX)
  Receive Date: 20180614
  Receipt Date: 20180614
  Transmission Date: 20180711
  Serious: Yes (Death, Hospitalization, Other)
  Sender: FDA-Public Use
  Company Number: MX-BIOMARINAP-MX-2018-118646

PATIENT
  Age: 12 Year
  Sex: Female

DRUGS (1)
  1. ALDURAZYME [Suspect]
     Active Substance: LARONIDASE
     Indication: MUCOPOLYSACCHARIDOSIS I
     Dosage: 3 DF, UNK
     Route: 041
     Dates: start: 2011

REACTIONS (2)
  - Cardio-respiratory arrest [Fatal]
  - Tonsillectomy [Unknown]

NARRATIVE: CASE EVENT DATE: 20180605
